FAERS Safety Report 16409287 (Version 1)
Quarter: 2019Q3

REPORT INFORMATION
  Report Type: Spontaneous
  Country: US (occurrence: US)
  Receive Date: 20190609
  Receipt Date: 20190609
  Transmission Date: 20191004
  Serious: Yes (Other)
  Sender: FDA-Public Use
  Company Number: None

PATIENT
  Age: 57 Year
  Sex: Female
  Weight: 79.83 kg

DRUGS (1)
  1. NYSTATIN CREAM USP [Suspect]
     Active Substance: NYSTATIN

REACTIONS (4)
  - Vulvovaginal erythema [None]
  - Vulvovaginal swelling [None]
  - Drug hypersensitivity [None]
  - Vulvovaginal pruritus [None]

NARRATIVE: CASE EVENT DATE: 20190607
